FAERS Safety Report 7526934-7 (Version None)
Quarter: 2011Q2

REPORT INFORMATION
  Report Type: 
  Country: None (occurrence: None)
  Receive Date: 20110606
  Receipt Date: 20040609
  Transmission Date: 20111010
  Serious: Yes (Death, Life-Threatening, Other)
  Sender: FDA-Public Use
  Company Number: PHHO2004CA07782

PATIENT
  Sex: Male
  Weight: 68.2 kg

DRUGS (4)
  1. PROCYCLIDINE HYDROCHLORIDE 2MG TAB [Concomitant]
  2. RANITIDINE [Concomitant]
  3. MODECATE [Concomitant]
  4. CLOZAPINE [Suspect]
     Indication: SCHIZOPHRENIA
     Dosage: 37.5 MG, QD
     Route: 048
     Dates: start: 19950801

REACTIONS (5)
  - HEAD INJURY [None]
  - DEATH [None]
  - LACERATION [None]
  - SYNCOPE [None]
  - CARDIAC ARREST [None]
